FAERS Safety Report 7547513-1 (Version None)
Quarter: 2011Q2

REPORT INFORMATION
  Report Type: 
  Country: None (occurrence: None)
  Receive Date: 20110614
  Receipt Date: 20110608
  Transmission Date: 20111010
  Serious: No
  Sender: FDA-Public Use
  Company Number: US-PFIZER INC-2011126155

PATIENT
  Sex: Male

DRUGS (8)
  1. VIAGRA [Suspect]
     Dosage: UNK
  2. UROXATRAL [Concomitant]
  3. ACTOS [Concomitant]
  4. VALSARTAN [Concomitant]
  5. GLUCOVANCE [Concomitant]
  6. NIFEDICAL [Concomitant]
  7. NAPROXEN [Concomitant]
  8. AVODART [Concomitant]

REACTIONS (1)
  - DRUG EFFECT DECREASED [None]
